FAERS Safety Report 5866916-4 (Version None)
Quarter: 2008Q3

REPORT INFORMATION
  Report Type: 
  Country: None (occurrence: None)
  Receive Date: 20080902
  Receipt Date: 20080508
  Transmission Date: 20090109
  Serious: No
  Sender: FDA-Public Use
  Company Number: US-BAYER-200812141BCC

PATIENT
  Age: 28 Year
  Sex: Male
  Weight: 143 kg

DRUGS (1)
  1. ALEVE [Suspect]
     Indication: NASOPHARYNGITIS
     Dosage: TOTAL DAILY DOSE: 220 MG  UNIT DOSE: 220 MG
     Route: 048
     Dates: start: 20080507

REACTIONS (1)
  - INSOMNIA [None]
